FAERS Safety Report 8398485-1 (Version None)
Quarter: 2012Q2

REPORT INFORMATION
  Report Type: 
  Country: None (occurrence: None)
  Receive Date: 20120531
  Receipt Date: 20120528
  Transmission Date: 20120825
  Serious: Yes (Hospitalization, Other)
  Sender: FDA-Public Use
  Company Number: GB-ROCHE-1006396

PATIENT
  Sex: Male

DRUGS (4)
  1. NITRAZEPAM [Concomitant]
     Dates: start: 20100101
  2. LUCENTIS [Suspect]
     Indication: PRODUCT USED FOR UNKNOWN INDICATION
     Route: 050
  3. SIMVASTATIN [Concomitant]
     Dates: start: 20100101
  4. ATENOLOL [Concomitant]
     Dates: start: 20100101

REACTIONS (2)
  - AORTIC ANEURYSM [None]
  - MALAISE [None]
